FAERS Safety Report 23664940 (Version 1)
Quarter: 2024Q1

REPORT INFORMATION
  Report Type: Spontaneous
  Country: PL (occurrence: PL)
  Receive Date: 20240322
  Receipt Date: 20240322
  Transmission Date: 20240410
  Serious: Yes (Hospitalization, Other)
  Sender: FDA-Public Use
  Company Number: PL-EMA-DD-20240314-7482645- 105257

PATIENT
  Age: 60 Year
  Sex: Female

DRUGS (8)
  1. MYCOPHENOLATE MOFETIL [Suspect]
     Active Substance: MYCOPHENOLATE MOFETIL
     Indication: Immunosuppression
     Dosage: 500 MG, BID
     Route: 065
  2. MYCOPHENOLATE MOFETIL [Suspect]
     Active Substance: MYCOPHENOLATE MOFETIL
     Indication: Renal transplant
     Dosage: 250 MG, BID
     Route: 065
  3. METHYLPREDNISOLONE [Suspect]
     Active Substance: METHYLPREDNISOLONE
     Indication: Immunosuppressant drug therapy
     Dosage: 10 MG, QD
     Route: 065
     Dates: start: 20180427
  4. METHYLPREDNISOLONE [Suspect]
     Active Substance: METHYLPREDNISOLONE
     Indication: Renal transplant
     Dosage: 250 MG, QD
     Route: 065
     Dates: start: 20180309, end: 2018
  5. PREDNISONE [Suspect]
     Active Substance: PREDNISONE
     Indication: Immunosuppression
     Dosage: 5 MG, QD
     Route: 065
     Dates: start: 20180309
  6. PREDNISONE [Suspect]
     Active Substance: PREDNISONE
     Indication: Renal transplant
  7. TACROLIMUS [Suspect]
     Active Substance: TACROLIMUS
     Indication: Prophylaxis against transplant rejection
     Dosage: 1 MG,12 HOUR
     Route: 065
  8. TACROLIMUS [Suspect]
     Active Substance: TACROLIMUS
     Indication: Immunosuppression
     Dosage: 250 MG, QD
     Route: 065

REACTIONS (10)
  - Impaired healing [Recovered/Resolved]
  - Stenotrophomonas infection [Recovered/Resolved]
  - Escherichia infection [Recovered/Resolved]
  - Klebsiella infection [Recovered/Resolved]
  - Enterococcal infection [Recovered/Resolved]
  - Candida infection [Recovered/Resolved]
  - Renal failure [Recovered/Resolved]
  - Wound infection staphylococcal [Recovered/Resolved]
  - Staphylococcal infection [Unknown]
  - Bacterial test positive [Unknown]

NARRATIVE: CASE EVENT DATE: 20180314
